FAERS Safety Report 6234440-5 (Version None)
Quarter: 2009Q2

REPORT INFORMATION
  Report Type: 
  Country: None (occurrence: None)
  Receive Date: 20090618
  Receipt Date: 20090617
  Transmission Date: 20091009
  Serious: Yes (Hospitalization)
  Sender: FDA-Public Use
  Company Number: ES-ROCHE-638598

PATIENT
  Sex: Male

DRUGS (2)
  1. CAPECITABINE [Suspect]
     Dosage: FREQUENCY DAILY. TEMPORARILY INTERRUPTED
     Route: 048
     Dates: start: 20090223
  2. BEVACIZUMAB [Suspect]
     Route: 042
     Dates: start: 20090223

REACTIONS (1)
  - HERPES ZOSTER [None]
